FAERS Safety Report 4834738-9 (Version None)
Quarter: 2005Q4

REPORT INFORMATION
  Report Type: 
  Country: None (occurrence: None)
  Receive Date: 20051122
  Receipt Date: 20050808
  Transmission Date: 20060501
  Serious: No
  Sender: FDA-Public Use
  Company Number: US-BRISTOL-MYERS SQUIBB COMPANY-13066063

PATIENT
  Age: 78 Year
  Sex: Male
  Weight: 57 kg

DRUGS (3)
  1. PRAVACHOL [Suspect]
     Indication: ARTERIOSCLEROSIS
     Route: 048
     Dates: start: 20050727
  2. LEVOTHYROXINE SODIUM [Concomitant]
  3. ZESTORETIC [Concomitant]

REACTIONS (2)
  - PRURITUS [None]
  - RASH [None]
